FAERS Safety Report 5985970-2 (Version None)
Quarter: 2008Q4

REPORT INFORMATION
  Report Type: 
  Country: None (occurrence: None)
  Receive Date: 20081205
  Receipt Date: 20081205
  Transmission Date: 20090506
  Serious: Yes (Hospitalization)
  Sender: FDA-Public Use
  Company Number: None

PATIENT
  Sex: Male
  Weight: 71.5 kg

DRUGS (21)
  1. ZOSYN [Suspect]
     Indication: ANTIBIOTIC THERAPY
     Dosage: 3.375 GM Q 6 HOURS IV
     Route: 042
     Dates: start: 20081130, end: 20081203
  2. VANCOMYCIN [Suspect]
     Indication: ANTIBIOTIC THERAPY
     Dosage: 1 GM Q 12 HOURS IV
     Route: 042
     Dates: start: 20081130, end: 20081203
  3. FLUOROURACIL [Suspect]
     Indication: OESOPHAGEAL CARCINOMA
     Dosage: 955 MG IN 1 L Q 12 HR X 8 BAGS IV
     Route: 042
     Dates: start: 20081110, end: 20081114
  4. CISPLATIN [Suspect]
     Indication: OESOPHAGEAL CARCINOMA
     Dosage: 19 MG IN 1 L Q 12 HR X 9 BAGS IV
     Route: 042
     Dates: start: 20081110, end: 20081114
  5. LOVENOX [Suspect]
     Indication: DEEP VEIN THROMBOSIS
     Dosage: 80 MG Q 12 HOURS SQ
     Route: 058
     Dates: start: 20081007
  6. REGLAN [Suspect]
     Indication: NAUSEA
     Dosage: 10 MG Q 6 HOURS PO
     Route: 048
     Dates: start: 20081114
  7. SALT AND SODA SOLUTION -1 TSP EACH IN QT WATER [Suspect]
     Dosage: 5-10 ML PRN PO
     Route: 048
     Dates: start: 20081110
  8. DIPHENHYDRAMINE-ANTACID-LIDOCAINE 1:1:1 [Suspect]
     Indication: ORAL PAIN
     Dosage: 5-10 ML PRN PO
     Route: 048
     Dates: start: 20081110
  9. COLACE [Suspect]
     Dosage: 100 MG TWICE DAILY PO
     Route: 048
     Dates: start: 20081007
  10. PREVACID [Suspect]
     Dosage: 30 MG TWICE DAILY PO
     Route: 048
  11. MILK OF MAGNESIA 400MG/5ML [Suspect]
     Indication: CONSTIPATION
     Dosage: 30 ML PRN PO
     Route: 048
     Dates: start: 20081007
  12. OXYCODONE 5MG/5ML [Suspect]
     Indication: PAIN
     Dosage: 5-10 MG Q 4 HRS PRN PO
     Route: 048
     Dates: start: 20081007
  13. K-DUR [Suspect]
     Indication: ELECTROLYTE SUBSTITUTION THERAPY
     Dosage: 40 MEQ ONCE PO
     Route: 048
     Dates: start: 20081111
  14. HYDROCODONE-HOMATROPHINIE 5-1.5MG/5ML [Suspect]
     Indication: COUGH
     Dosage: 5 ML Q 12 HOURS PRN PO
     Route: 048
     Dates: start: 20081110, end: 20081114
  15. CLARITIN [Suspect]
     Indication: MULTIPLE ALLERGIES
     Dosage: 10 MG QD PO
     Route: 048
     Dates: start: 20081111, end: 20081114
  16. ZOFRAN [Suspect]
     Indication: ANTIEMETIC SUPPORTIVE CARE
     Dosage: 9 MG Q 12 HOURS, #10 PO
     Route: 048
     Dates: start: 20081114, end: 20081119
  17. DEXAMETHASONE [Suspect]
     Indication: ANTIEMETIC SUPPORTIVE CARE
     Dosage: 4 MG 2 TAB SAT + SUN 1 TAB MON + TUES PO
     Route: 048
     Dates: start: 20081115, end: 20081118
  18. ZOFRAN [Suspect]
     Indication: ANTIEMETIC SUPPORTIVE CARE
     Dosage: 8 MG Q 8 HR AND PRN IV
     Route: 042
     Dates: start: 20081110, end: 20081114
  19. DEXAMETHASONE [Suspect]
     Indication: ANTIEMETIC SUPPORTIVE CARE
     Dosage: 10 MG QD IV
     Route: 042
     Dates: start: 20081112, end: 20081114
  20. REGLAN [Suspect]
     Indication: ANTIEMETIC SUPPORTIVE CARE
     Dosage: 10 MG Q 6 HOURS IV
     Route: 042
     Dates: start: 20081114
  21. COMPAZINE [Suspect]
     Dosage: 10 MG Q 6 HOURS PRN PO
     Route: 048
     Dates: start: 20080625

REACTIONS (3)
  - DRUG TOXICITY [None]
  - FEBRILE NEUTROPENIA [None]
  - WHITE BLOOD CELL COUNT DECREASED [None]
